FAERS Safety Report 14779286 (Version 1)
Quarter: 2018Q2

REPORT INFORMATION
  Report Type: Spontaneous
  Country: US (occurrence: US)
  Receive Date: 20180412
  Receipt Date: 20180412
  Transmission Date: 20180711
  Serious: Yes (Disabling)
  Sender: FDA-Public Use
  Company Number: None

PATIENT
  Age: 62 Year
  Sex: Female
  Weight: 56.7 kg

DRUGS (2)
  1. ROSUVASTATIN. [Concomitant]
     Active Substance: ROSUVASTATIN
  2. TYMLOS [Suspect]
     Active Substance: ABALOPARATIDE
     Indication: OSTEOPOROSIS
     Dosage: 1 INJECTION AT BEDTIME IN ABDOMINAL FAT?
     Dates: start: 20180116, end: 20180403

REACTIONS (2)
  - Therapy cessation [None]
  - Palpitations [None]

NARRATIVE: CASE EVENT DATE: 20180412
